FAERS Safety Report 5545742-X (Version None)
Quarter: 2007Q4

REPORT INFORMATION
  Report Type: 
  Country: None (occurrence: None)
  Receive Date: 20071207
  Receipt Date: 20071204
  Transmission Date: 20080405
  Serious: Yes (Other)
  Sender: FDA-Public Use
  Company Number: 2007S1000225

PATIENT
  Age: 4 Day
  Sex: Female
  Weight: 0.91 kg

DRUGS (7)
  1. NITRIC OXIDE [Suspect]
     Indication: LUNG DISORDER
     Dosage: 5 PPM; CONT; INH
     Route: 055
     Dates: start: 20071127
  2. NITRIC OXIDE [Suspect]
     Indication: PROPHYLAXIS
     Dosage: 5 PPM; CONT; INH
     Route: 055
     Dates: start: 20071127
  3. DOPAMINE HCL [Concomitant]
  4. MORPHINE [Concomitant]
  5. FLUCLOXACILLIN [Concomitant]
  6. GENTAMICIN [Concomitant]
  7. SODIUM BICARBONATE [Concomitant]

REACTIONS (2)
  - CEREBRAL INFARCTION [None]
  - INTRAVENTRICULAR HAEMORRHAGE NEONATAL [None]
